FAERS Safety Report 6860565-7 (Version None)
Quarter: 2010Q3

REPORT INFORMATION
  Report Type: 
  Country: None (occurrence: None)
  Receive Date: 20100720
  Receipt Date: 20100712
  Transmission Date: 20110219
  Serious: Yes (Hospitalization)
  Sender: FDA-Public Use
  Company Number: B0665187A

PATIENT
  Age: 17 Year

DRUGS (3)
  1. LAMICTAL [Suspect]
     Indication: PRODUCT USED FOR UNKNOWN INDICATION
     Route: 048
     Dates: start: 20100608, end: 20100601
  2. LAMICTAL [Suspect]
     Route: 048
     Dates: start: 20100601
  3. DEPAKENE [Concomitant]
     Route: 048
     Dates: start: 20100626

REACTIONS (2)
  - NECK MASS [None]
  - PYREXIA [None]
